FAERS Safety Report 18873356 (Version 2)
Quarter: 2021Q4

REPORT INFORMATION
  Report Type: Report from Study
  Country: FR (occurrence: FR)
  Receive Date: 20210210
  Receipt Date: 20211206
  Transmission Date: 20220303
  Serious: Yes (Disabling, Other)
  Sender: FDA-Public Use
  Company Number: FR-ABBVIE-21K-056-3765376-00

PATIENT
  Sex: Male

DRUGS (3)
  1. CARBIDOPA\LEVODOPA [Suspect]
     Active Substance: CARBIDOPA\LEVODOPA
     Indication: Parkinson^s disease
     Route: 050
     Dates: start: 202003
  2. CARBIDOPA\LEVODOPA [Suspect]
     Active Substance: CARBIDOPA\LEVODOPA
  3. CLOZAPINE [Concomitant]
     Active Substance: CLOZAPINE
     Indication: Product used for unknown indication

REACTIONS (14)
  - Hallucination [Not Recovered/Not Resolved]
  - Behaviour disorder [Unknown]
  - Fatigue [Unknown]
  - Anxiety [Unknown]
  - Middle insomnia [Unknown]
  - Sleep disorder [Unknown]
  - Disorientation [Unknown]
  - Somnolence [Unknown]
  - Tremor [Unknown]
  - Stress [Unknown]
  - Anger [Unknown]
  - Motor dysfunction [Unknown]
  - Obstruction [Unknown]
  - Somnolence [Unknown]

NARRATIVE: CASE EVENT DATE: 20210101
